FAERS Safety Report 10404463 (Version 1)
Quarter: 2014Q1

REPORT INFORMATION
  Report Type: Spontaneous
  Country: US (occurrence: None)
  Receive Date: 20140306
  Receipt Date: 20140306
  Transmission Date: 20141002
  Serious: Yes (Other)
  Sender: FDA-Public Use
  Company Number: 163-21880-12053396

PATIENT
  Age: 78 Year
  Sex: Male
  Weight: 77.11 kg

DRUGS (21)
  1. REVLIMID (LENALIDOMIDE) (5 MILLIGRAM, CAPSULES) [Suspect]
     Indication: PLASMA CELL MYELOMA
     Dosage: 5 MG, 21 IN 28 D, PO
     Route: 048
     Dates: start: 20100216
  2. ASPIRIN (ACETYLSALCYLIC ACID) [Concomitant]
  3. ATENOLOL [Concomitant]
  4. CAPTOPRIL [Concomitant]
  5. LIPITOR (ATORVASTATIN) [Concomitant]
  6. METFORMIN HCL (METFORMIN HYDROCHLORIDE) [Concomitant]
  7. NEURONTIN GABAOPENTIN) [Concomitant]
  8. PLAVIX (CLOPIDOGREL SULFATE) [Concomitant]
  9. SYNTHROID (LEVOTHYROXINE SODIUM) [Concomitant]
  10. LOMOTRIL [Concomitant]
  11. ALLPURINOL [Concomitant]
  12. MULTIVITAMINS [Concomitant]
  13. MULTI VITAMIN [Suspect]
  14. PATANASE OLOPATADINE HYDRCHLORIDE) [Concomitant]
  15. CEFDINIR [Concomitant]
  16. MIRTAZAPINE [None]
  17. FLURBIPROFEN  HYC DR (DOXCYCLOVIRE HYCATE) [Concomitant]
  18. DOXYCLINE HYC DR (DOXYCYCLINE HYCLATE) [Concomitant]
  19. PEPTO-BISMOL (BISMOUTH SUCSALSCYLATE) [Concomitant]
  20. CALCIUM [Concomitant]
  21. FLUOROURACIL [Concomitant]

REACTIONS (3)
  - Diarrhoea [None]
  - Food craving [None]
  - Fatigue [None]
